FAERS Safety Report 23893835 (Version 1)
Quarter: 2024Q2

REPORT INFORMATION
  Report Type: Spontaneous
  Country: US (occurrence: None)
  Receive Date: 20240524
  Receipt Date: 20240524
  Transmission Date: 20240716
  Serious: No
  Sender: FDA-Public Use
  Company Number: US-ROCHE-3357885

PATIENT
  Age: 64 Year
  Sex: Male
  Weight: 97.61 kg

DRUGS (9)
  1. ACTEMRA [Suspect]
     Active Substance: TOCILIZUMAB
     Indication: Product used for unknown indication
     Route: 058
     Dates: start: 202303
  2. ACTEMRA [Suspect]
     Active Substance: TOCILIZUMAB
  3. ACTEMRA [Suspect]
     Active Substance: TOCILIZUMAB
     Route: 058
     Dates: start: 202304
  4. ACTEMRA [Suspect]
     Active Substance: TOCILIZUMAB
  5. FLECAINIDE ACETATE [Concomitant]
     Active Substance: FLECAINIDE ACETATE
     Route: 048
     Dates: start: 202207
  6. METOPROLOL [Concomitant]
     Active Substance: METOPROLOL
     Route: 048
     Dates: start: 202207
  7. ELIQUIS [Concomitant]
     Active Substance: APIXABAN
  8. ROSUVASTATIN [Concomitant]
     Active Substance: ROSUVASTATIN
  9. PREDNISONE [Concomitant]
     Active Substance: PREDNISONE

REACTIONS (5)
  - Off label use [Unknown]
  - No adverse event [Unknown]
  - Underdose [Unknown]
  - Exposure via skin contact [Unknown]
  - Wrong technique in device usage process [Unknown]

NARRATIVE: CASE EVENT DATE: 20230301
